FAERS Safety Report 5024573-3 (Version None)
Quarter: 2006Q2

REPORT INFORMATION
  Report Type: 
  Country: None (occurrence: None)
  Receive Date: 20060426
  Receipt Date: 20060301
  Transmission Date: 20061013
  Serious: Yes (Other)
  Sender: FDA-Public Use
  Company Number: 2005172717

PATIENT
  Age: 65 Year
  Sex: Female
  Weight: 61.2356 kg

DRUGS (6)
  1. LYRICA [Suspect]
     Indication: PAIN
     Dosage: 150 MG (50 MG,3 IN 1 D),ORAL
     Route: 048
     Dates: start: 20051213
  2. SINEMET [Concomitant]
  3. ALL OTHER THERAPEUTIC PRODUCTS (ALL OTHER THERAPEUTIC PRODUCTS) [Concomitant]
  4. XANAX [Concomitant]
  5. FLEXERIL [Concomitant]
  6. MORPHINE SULFATE [Concomitant]

REACTIONS (4)
  - DIZZINESS [None]
  - SOMNOLENCE [None]
  - TONGUE DISORDER [None]
  - VISION BLURRED [None]
